FAERS Safety Report 15936334 (Version 1)
Quarter: 2019Q1

REPORT INFORMATION
  Report Type: Spontaneous
  Country: US (occurrence: US)
  Receive Date: 20190208
  Receipt Date: 20190208
  Transmission Date: 20190417
  Serious: Yes (Hospitalization, Other)
  Sender: FDA-Public Use
  Company Number: US-IBIGEN-2019.05841

PATIENT
  Age: 16 Year
  Sex: Male

DRUGS (1)
  1. AMPICILLIN [Suspect]
     Active Substance: AMPICILLIN
     Indication: ESCHERICHIA INFECTION

REACTIONS (4)
  - Pancreatitis [Recovered/Resolved]
  - Enterocolitis [Recovered/Resolved]
  - Clostridium difficile infection [Recovered/Resolved]
  - Salmonellosis [Recovered/Resolved]
